FAERS Safety Report 11340788 (Version 1)
Quarter: 2015Q3

REPORT INFORMATION
  Report Type: Spontaneous
  Country: US (occurrence: None)
  Receive Date: 20150803
  Receipt Date: 20150803
  Transmission Date: 20151125
  Serious: Yes (Hospitalization)
  Sender: FDA-Public Use
  Company Number: None

PATIENT
  Age: 53 Year
  Sex: Female

DRUGS (1)
  1. LISINOPRIL. [Suspect]
     Active Substance: LISINOPRIL
     Indication: HYPERTENSION
     Route: 048
     Dates: start: 20140824

REACTIONS (6)
  - Dizziness [None]
  - Colitis ischaemic [None]
  - Abdominal pain [None]
  - Hypotension [None]
  - Vomiting [None]
  - Angioedema [None]

NARRATIVE: CASE EVENT DATE: 20140824
